FAERS Safety Report 25030125 (Version 1)
Quarter: 2025Q1

REPORT INFORMATION
  Report Type: Report from Study
  Country: ZA (occurrence: ZA)
  Receive Date: 20250303
  Receipt Date: 20250303
  Transmission Date: 20250408
  Serious: Yes (Hospitalization)
  Sender: ALEXION PHARMACEUTICALS
  Company Number: ZA-AstraZeneca-CH-00813635A

PATIENT
  Age: 51 Year

DRUGS (7)
  1. BUDESONIDE\FORMOTEROL [Suspect]
     Active Substance: BUDESONIDE\FORMOTEROL
     Indication: Asthma
  2. VITAMIN C [Concomitant]
     Active Substance: ASCORBIC ACID
  3. ACETAMINOPHEN\CAFFEINE\CODEINE PHOSPHATE\MEPROBAMATE [Concomitant]
     Active Substance: ACETAMINOPHEN\CAFFEINE\CODEINE PHOSPHATE\MEPROBAMATE
     Indication: Pain
  4. CELECOXIB [Concomitant]
     Active Substance: CELECOXIB
     Indication: Pain
  5. CELECOXIB [Concomitant]
     Active Substance: CELECOXIB
  6. Gen payne [Concomitant]
  7. Medi-keel a [Concomitant]

REACTIONS (2)
  - Hospitalisation [Unknown]
  - Carpal tunnel syndrome [Unknown]
